FAERS Safety Report 6457270-8 (Version None)
Quarter: 2009Q4

REPORT INFORMATION
  Report Type: 
  Country: None (occurrence: None)
  Receive Date: 20091125
  Receipt Date: 20091118
  Transmission Date: 20100525
  Serious: Yes (Death, Hospitalization)
  Sender: FDA-Public Use
  Company Number: IN-PFIZER INC-2008087419

PATIENT
  Age: 47 Year
  Sex: Male
  Weight: 37.3 kg

DRUGS (14)
  1. *FLUOROURACIL [Suspect]
     Indication: COLON CANCER
     Dosage: 400 MG/M2 (568 MG), EVERY 15 DAYS
     Route: 040
     Dates: start: 20080122, end: 20081006
  2. *FLUOROURACIL [Suspect]
     Dosage: 2400 MG/M2 (3408 MG), EVERY 15 DAYS
     Route: 041
     Dates: start: 20080122
  3. BLINDED *NO SUBJECT DRUG [Suspect]
     Indication: COLON CANCER
     Dosage: 37.5 MG, 1X/DAY
     Route: 048
     Dates: start: 20080122
  4. BLINDED *PLACEBO [Suspect]
     Indication: COLON CANCER
     Dosage: 37.5 MG, 1X/DAY
     Route: 048
     Dates: start: 20080122
  5. BLINDED SUNITINIB MALATE [Suspect]
     Indication: COLON CANCER
     Dosage: 37.5 MG, 1X/DAY
     Route: 048
     Dates: start: 20080122
  6. IRINOTECAN HCL [Suspect]
     Indication: COLON CANCER
     Dosage: 180 MG/M2 (255 MG), EVERY 15 DAYS
     Route: 042
     Dates: start: 20080122, end: 20081006
  7. *CALCIUM FOLINATE [Suspect]
     Indication: COLON CANCER
     Dosage: 200 MG/M2 (284 MG), EVERY 15 DAYS
     Route: 042
     Dates: start: 20080122, end: 20081006
  8. DOMPERIDONE/PANTOPRAZOLE [Concomitant]
     Dosage: UNK
     Route: 048
     Dates: start: 20080122
  9. CYPROHEPTADINE [Concomitant]
     Dosage: UNK
     Route: 048
     Dates: start: 20080122
  10. ONDANSETRON HYDROCHLORIDE [Concomitant]
     Dosage: UNK
     Route: 048
     Dates: start: 20080122, end: 20081009
  11. GRANISETRON HCL [Concomitant]
     Dosage: UNK
     Dates: start: 20080122, end: 20081006
  12. DEXAMETHASONE TAB [Concomitant]
     Dosage: UNK
     Route: 042
     Dates: start: 20080122, end: 20081006
  13. TRAMAZAC [Concomitant]
     Dosage: UNK
     Route: 048
     Dates: start: 20081007, end: 20081010
  14. LOPERAMIDE [Concomitant]
     Dosage: UNK
     Route: 048
     Dates: start: 20081007, end: 20081008

REACTIONS (5)
  - ASTHENIA [None]
  - DEHYDRATION [None]
  - DIARRHOEA [None]
  - NEUTROPENIC SEPSIS [None]
  - VOMITING [None]
